FAERS Safety Report 6742771-5 (Version None)
Quarter: 2010Q2

REPORT INFORMATION
  Report Type: 
  Country: None (occurrence: None)
  Receive Date: 20100525
  Receipt Date: 20100510
  Transmission Date: 20101027
  Serious: Yes (Hospitalization)
  Sender: FDA-Public Use
  Company Number: UTC-001050

PATIENT
  Age: 63 Year
  Sex: Female

DRUGS (6)
  1. REMODULIN [Suspect]
     Indication: PULMONARY ARTERIAL HYPERTENSION
     Dosage: SUBCUTANEOUS
     Route: 058
     Dates: start: 20090728, end: 20100418
  2. KLOR-CON [Concomitant]
  3. ISOSORB MONO (ISOSORBIDE DINITRATE) [Concomitant]
  4. LEVOTHYROXINE SODIUM [Concomitant]
  5. PROVIGIL [Concomitant]
  6. MAGNEBIND (GALENIC/MAGNESIUM CARB/CALCIUM CARB/) [Concomitant]

REACTIONS (7)
  - ABSCESS [None]
  - INFECTION [None]
  - MASS [None]
  - PAIN IN EXTREMITY [None]
  - POOR PERSONAL HYGIENE [None]
  - PULMONARY HYPERTENSION [None]
  - TREATMENT NONCOMPLIANCE [None]
